FAERS Safety Report 11633598 (Version 9)
Quarter: 2015Q4

REPORT INFORMATION
  Report Type: Report from Study
  Country: FR (occurrence: FR)
  Receive Date: 20151015
  Receipt Date: 20151217
  Transmission Date: 20160304
  Serious: Yes (Death, Hospitalization, Other)
  Sender: FDA-Public Use
  Company Number: PHHY2015FR125009

PATIENT
  Age: 58 Year
  Sex: Female

DRUGS (4)
  1. AROMASINE [Concomitant]
     Active Substance: EXEMESTANE
     Indication: BREAST CANCER METASTATIC
     Dosage: 25 MG, QD
     Route: 048
     Dates: start: 20150725, end: 20150903
  2. PARACETAMOL [Concomitant]
     Active Substance: ACETAMINOPHEN
     Indication: PAIN
     Dosage: 1 G, UNK
     Route: 065
     Dates: start: 20150903, end: 20150903
  3. AFINITOR [Suspect]
     Active Substance: EVEROLIMUS
     Indication: BREAST CANCER METASTATIC
     Dosage: 2.5 MG, QD
     Route: 048
     Dates: start: 20150727, end: 20150903
  4. PACLITAXEL. [Concomitant]
     Active Substance: PACLITAXEL
     Indication: BREAST CANCER METASTATIC
     Dosage: 150 MG, QD (FIRST WEEKLY COURSE)
     Route: 042
     Dates: start: 20150904, end: 20150904

REACTIONS (17)
  - Coma [Unknown]
  - Leukopenia [Fatal]
  - Blood alkaline phosphatase increased [Unknown]
  - Asthenia [Not Recovered/Not Resolved]
  - Hypotension [Fatal]
  - Septic shock [Fatal]
  - Metabolic acidosis [Unknown]
  - Ascites [Not Recovered/Not Resolved]
  - Jaundice [Not Recovered/Not Resolved]
  - Aspartate aminotransferase increased [Unknown]
  - Abdominal distension [Recovered/Resolved]
  - Tumour lysis syndrome [Fatal]
  - Hyperuricaemia [Fatal]
  - Hyperkalaemia [Fatal]
  - Gamma-glutamyltransferase increased [Unknown]
  - Hypophosphataemia [Unknown]
  - General physical health deterioration [Unknown]

NARRATIVE: CASE EVENT DATE: 20150827
